FAERS Safety Report 5270578-7 (Version None)
Quarter: 2007Q1

REPORT INFORMATION
  Report Type: 
  Country: None (occurrence: None)
  Receive Date: 20070315
  Receipt Date: 20070307
  Transmission Date: 20070707
  Serious: Yes (Other)
  Sender: FDA-Public Use
  Company Number: 237904

PATIENT
  Age: 88 Year
  Sex: Female

DRUGS (3)
  1. LUCENTIS [Suspect]
     Indication: DRUG USE FOR UNKNOWN INDICATION
  2. XOPENEX [Concomitant]
  3. DIOVAN [Concomitant]

REACTIONS (4)
  - ASTHMA [None]
  - EYE PAIN [None]
  - SENSATION OF FOREIGN BODY [None]
  - VISUAL DISTURBANCE [None]
